FAERS Safety Report 6532171-5 (Version None)
Quarter: 2010Q1

REPORT INFORMATION
  Report Type: 
  Country: None (occurrence: None)
  Receive Date: 20100108
  Receipt Date: 20100105
  Transmission Date: 20100710
  Serious: Yes (Hospitalization)
  Sender: FDA-Public Use
  Company Number: B0623402A

PATIENT
  Sex: Female

DRUGS (10)
  1. AUGMENTIN '125' [Suspect]
     Indication: BRONCHITIS
     Dosage: 1G TWICE PER DAY
     Route: 048
     Dates: start: 20091118, end: 20091128
  2. PREVISCAN [Suspect]
     Indication: DRUG USE FOR UNKNOWN INDICATION
     Dosage: 10MG PER DAY
     Route: 048
  3. LASILIX FAIBLE [Concomitant]
     Dosage: 20MG PER DAY
     Route: 048
  4. KALEORID LP [Concomitant]
     Dosage: 600MG SIX TIMES PER DAY
     Route: 048
     Dates: end: 20091128
  5. DITROPAN [Concomitant]
     Indication: URINARY INCONTINENCE
     Dosage: 1.25MG THREE TIMES PER DAY
     Route: 048
     Dates: end: 20091128
  6. DAFALGAN [Concomitant]
     Dosage: 1000MG FOUR TIMES PER DAY
     Route: 048
     Dates: end: 20091128
  7. LIORESAL [Concomitant]
     Dosage: 20MG THREE TIMES PER DAY
     Route: 048
  8. LIPANTHYL [Concomitant]
     Dosage: 160MG PER DAY
     Route: 048
  9. SOTALEX [Concomitant]
     Dosage: 80MG TWICE PER DAY
     Route: 048
  10. PROZAC [Concomitant]
     Dosage: 20MG PER DAY
     Route: 048

REACTIONS (14)
  - ABDOMINAL DISTENSION [None]
  - ABDOMINAL RIGIDITY [None]
  - ARTERIAL OCCLUSIVE DISEASE [None]
  - COUGH [None]
  - DRUG INTERACTION [None]
  - DYSPNOEA AT REST [None]
  - ESCHERICHIA INFECTION [None]
  - FLATULENCE [None]
  - MUCOUS MEMBRANE DISORDER [None]
  - NAUSEA [None]
  - PRODUCTIVE COUGH [None]
  - RECTAL HAEMORRHAGE [None]
  - VOLVULUS [None]
  - VOMITING [None]
